FAERS Safety Report 10180709 (Version 2)
Quarter: 2014Q2

REPORT INFORMATION
  Report Type: Spontaneous
  Country: US (occurrence: US)
  Receive Date: 20140519
  Receipt Date: 20140519
  Transmission Date: 20141212
  Serious: No
  Sender: FDA-Public Use
  Company Number: US-AMGEN INC.-USASP2014016018

PATIENT
  Age: 60 Year
  Sex: Male
  Weight: 57.6 kg

DRUGS (2)
  1. PROLIA [Suspect]
     Indication: OSTEOPOROSIS
     Dosage: 60 MG, Q6MO
     Route: 058
     Dates: start: 20140113
  2. LUPRON [Concomitant]
     Indication: PROSTATE CANCER
     Dosage: 7.5 MG, QMO
     Route: 030
     Dates: start: 20131213

REACTIONS (5)
  - Nausea [Unknown]
  - Nodule [Not Recovered/Not Resolved]
  - Pruritus [Not Recovered/Not Resolved]
  - Rash pruritic [Not Recovered/Not Resolved]
  - Rash [Not Recovered/Not Resolved]
